FAERS Safety Report 9239511 (Version 1)
Quarter: 2013Q2

REPORT INFORMATION
  Report Type: Spontaneous
  Country: US (occurrence: US)
  Receive Date: 20130418
  Receipt Date: 20130418
  Transmission Date: 20140414
  Serious: Yes (Hospitalization, Other)
  Sender: FDA-Public Use
  Company Number: US-MPIJNJ-2013-02743

PATIENT
  Sex: 0

DRUGS (2)
  1. VELCADE [Suspect]
     Indication: PLASMA CELL MYELOMA
     Dosage: UNK, CYCLIC
     Route: 058
     Dates: start: 201302
  2. DEXAMETHASONE [Suspect]
     Indication: PLASMA CELL MYELOMA
     Dosage: UNK, 1/WEEK
     Dates: start: 201302

REACTIONS (3)
  - Hypoglycaemia [Unknown]
  - Urinary tract infection [Recovering/Resolving]
  - Pneumonia [Unknown]
